FAERS Safety Report 19002463 (Version 2)
Quarter: 2021Q1

REPORT INFORMATION
  Report Type: Other
  Country: CA (occurrence: CA)
  Receive Date: 20210312
  Receipt Date: 20210324
  Transmission Date: 20210420
  Serious: Yes (Hospitalization)
  Sender: FDA-Public Use
  Company Number: CA-ROCHE-2782260

PATIENT
  Sex: Female

DRUGS (6)
  1. MIRENA [Concomitant]
     Active Substance: LEVONORGESTREL
  2. OCREVUS [Suspect]
     Active Substance: OCRELIZUMAB
     Indication: RELAPSING-REMITTING MULTIPLE SCLEROSIS
     Route: 042
     Dates: start: 20160901
  3. OCREVUS [Suspect]
     Active Substance: OCRELIZUMAB
     Route: 042
  4. DOXYCYCLINE. [Concomitant]
     Active Substance: DOXYCYCLINE
  5. SEROQUEL [Concomitant]
     Active Substance: QUETIAPINE FUMARATE
  6. ZOLOFT [Concomitant]
     Active Substance: SERTRALINE HYDROCHLORIDE

REACTIONS (7)
  - Pelvic pain [Not Recovered/Not Resolved]
  - Bladder spasm [Not Recovered/Not Resolved]
  - Cystitis [Recovered/Resolved]
  - Bacterial vaginosis [Recovered/Resolved]
  - Pelvic inflammatory disease [Not Recovered/Not Resolved]
  - Asthenia [Not Recovered/Not Resolved]
  - Skin infection [Recovered/Resolved]
